FAERS Safety Report 23494294 (Version 2)
Quarter: 2024Q1

REPORT INFORMATION
  Report Type: Spontaneous
  Country: FI (occurrence: FI)
  Receive Date: 20240207
  Receipt Date: 20240313
  Transmission Date: 20240410
  Serious: Yes (Hospitalization)
  Sender: FDA-Public Use
  Company Number: FI-PFIZER INC-PV202400016675

PATIENT
  Age: 24 Year
  Sex: Female

DRUGS (2)
  1. CIBINQO [Suspect]
     Active Substance: ABROCITINIB
     Indication: Dermatitis atopic
     Dosage: 200 MG, 1X/DAY
     Route: 048
     Dates: start: 20240125, end: 20240126
  2. DIENOGEST\ETHINYL ESTRADIOL [Concomitant]
     Active Substance: DIENOGEST\ETHINYL ESTRADIOL
     Indication: Oral contraception
     Dosage: UNK

REACTIONS (4)
  - Arrhythmia [Recovered/Resolved]
  - Nausea [Recovered/Resolved]
  - Headache [Recovered/Resolved]
  - Feeling hot [Unknown]

NARRATIVE: CASE EVENT DATE: 20240125
